FAERS Safety Report 17864346 (Version 1)
Quarter: 2020Q2

REPORT INFORMATION
  Report Type: Spontaneous
  Country: US (occurrence: US)
  Receive Date: 20200604
  Receipt Date: 20200604
  Transmission Date: 20200714
  Serious: Yes (Death, Life-Threatening, Hospitalization)
  Sender: FDA-Public Use
  Company Number: None

PATIENT
  Age: 64 Year
  Sex: Female

DRUGS (1)
  1. ELIQUIS [Suspect]
     Active Substance: APIXABAN
     Indication: EMBOLISM VENOUS
     Route: 048

REACTIONS (4)
  - Dysarthria [None]
  - Epistaxis [None]
  - Mental status changes [None]
  - Haemoglobin decreased [None]

NARRATIVE: CASE EVENT DATE: 20200429
